FAERS Safety Report 6204004-8 (Version None)
Quarter: 2009Q2

REPORT INFORMATION
  Report Type: 
  Country: None (occurrence: None)
  Receive Date: 20090521
  Receipt Date: 20090514
  Transmission Date: 20091009
  Serious: Yes (Other)
  Sender: FDA-Public Use
  Company Number: 1000006285

PATIENT
  Age: 1 Month
  Sex: Female

DRUGS (2)
  1. LEXAPRO [Suspect]
     Dosage: 20 MG (20 MG), TRANSPLACENTAL
     Route: 064
     Dates: start: 20070101, end: 20080501
  2. ALLERX [Concomitant]

REACTIONS (7)
  - APNOEA [None]
  - HYPOVENTILATION [None]
  - IRRITABILITY [None]
  - MATERNAL DRUGS AFFECTING FOETUS [None]
  - MIDDLE INSOMNIA [None]
  - MUSCLE TWITCHING [None]
  - RESPIRATORY RATE INCREASED [None]
